FAERS Safety Report 17418905 (Version 1)
Quarter: 2020Q1

REPORT INFORMATION
  Report Type: Spontaneous
  Country: CA (occurrence: CA)
  Receive Date: 20200214
  Receipt Date: 20200214
  Transmission Date: 20200409
  Serious: Yes (Other)
  Sender: FDA-Public Use
  Company Number: CA-UCBSA-2020005423

PATIENT
  Sex: Female

DRUGS (8)
  1. CLONAZEPAM. [Concomitant]
     Active Substance: CLONAZEPAM
     Indication: PRODUCT USED FOR UNKNOWN INDICATION
  2. ZONISAMIDE. [Concomitant]
     Active Substance: ZONISAMIDE
     Indication: PRODUCT USED FOR UNKNOWN INDICATION
  3. KEPPRA [Suspect]
     Active Substance: LEVETIRACETAM
     Indication: PRODUCT USED FOR UNKNOWN INDICATION
  4. TEGRETOL [Concomitant]
     Active Substance: CARBAMAZEPINE
     Indication: PRODUCT USED FOR UNKNOWN INDICATION
  5. TOPAMAX [Concomitant]
     Active Substance: TOPIRAMATE
     Indication: PRODUCT USED FOR UNKNOWN INDICATION
  6. FELBAMATE. [Concomitant]
     Active Substance: FELBAMATE
     Indication: PRODUCT USED FOR UNKNOWN INDICATION
  7. DILANTIN [Concomitant]
     Active Substance: PHENYTOIN
     Indication: PRODUCT USED FOR UNKNOWN INDICATION
  8. TRILEPTAL [Concomitant]
     Active Substance: OXCARBAZEPINE
     Indication: PRODUCT USED FOR UNKNOWN INDICATION

REACTIONS (6)
  - Petit mal epilepsy [Unknown]
  - Atonic seizures [Unknown]
  - Epilepsy [Unknown]
  - Drug hypersensitivity [Unknown]
  - Focal dyscognitive seizures [Unknown]
  - Generalised tonic-clonic seizure [Unknown]
